FAERS Safety Report 4781012-5 (Version None)
Quarter: 2005Q3

REPORT INFORMATION
  Report Type: 
  Country: None (occurrence: None)
  Receive Date: 20050926
  Receipt Date: 20050914
  Transmission Date: 20060218
  Serious: Yes (Other)
  Sender: FDA-Public Use
  Company Number: ST-2005-008518

PATIENT
  Age: 66 Year
  Sex: Female

DRUGS (12)
  1. OLMETEC [Suspect]
     Indication: ESSENTIAL HYPERTENSION
     Dosage: 40 MG QD PO
     Route: 048
     Dates: start: 20050203, end: 20050414
  2. KINEDAK [Concomitant]
  3. JUVELA [Concomitant]
  4. EUGLUCON [Concomitant]
  5. NORVASC [Concomitant]
  6. CARDENALIN [Concomitant]
  7. DICHLOTRIDE [Concomitant]
  8. MICARDIS [Concomitant]
  9. TANATRIL [Concomitant]
  10. LASIX [Concomitant]
  11. RIZE [Concomitant]
  12. MYSLEE [Concomitant]

REACTIONS (1)
  - RENAL IMPAIRMENT [None]
